FAERS Safety Report 20582082 (Version 1)
Quarter: 2022Q1

REPORT INFORMATION
  Report Type: Spontaneous
  Country: VN (occurrence: VN)
  Receive Date: 20220311
  Receipt Date: 20220311
  Transmission Date: 20220424
  Serious: Yes (Other)
  Sender: FDA-Public Use
  Company Number: VN-PERRIGO-22VN003343

PATIENT
  Age: 10 Day
  Sex: Male

DRUGS (3)
  1. ERYTHROMYCIN [Suspect]
     Active Substance: ERYTHROMYCIN
     Indication: Neonatal infection
     Dosage: UNKNOWN
     Route: 065
  2. AMPICILLIN [Suspect]
     Active Substance: AMPICILLIN
     Indication: Neonatal infection
     Dosage: UNK
     Route: 061
  3. CEFOTAXIME [Suspect]
     Active Substance: CEFOTAXIME SODIUM
     Indication: Neonatal infection
     Dosage: UNK
     Route: 061

REACTIONS (1)
  - Acute generalised exanthematous pustulosis [Recovered/Resolved]
